FAERS Safety Report 22366638 (Version 1)
Quarter: 2023Q2

REPORT INFORMATION
  Report Type: Spontaneous
  Country: IN (occurrence: IN)
  Receive Date: 20230525
  Receipt Date: 20230525
  Transmission Date: 20230722
  Serious: Yes (Death)
  Sender: FDA-Public Use
  Company Number: IN-PFIZER INC-202101283242

PATIENT
  Age: 79 Year
  Sex: Female

DRUGS (12)
  1. PALBOCICLIB [Suspect]
     Active Substance: PALBOCICLIB
     Dosage: 125 MG, 1X/DAY (21/28 DAYS)
     Route: 048
     Dates: start: 20210716
  2. PALBOCICLIB [Suspect]
     Active Substance: PALBOCICLIB
     Dosage: 125 MG, 1X/DAY (14 DAYS INSTEAD OF 21 DAYS )
     Route: 048
     Dates: start: 20210916
  3. PALBOCICLIB [Suspect]
     Active Substance: PALBOCICLIB
     Dosage: 125 MG
     Route: 048
     Dates: start: 20210730, end: 20211101
  4. PALBOCICLIB [Suspect]
     Active Substance: PALBOCICLIB
     Dosage: 100 MG
     Route: 048
     Dates: end: 20220730
  5. PALBOCICLIB [Suspect]
     Active Substance: PALBOCICLIB
     Dosage: 100MG ONCE A DAY, 21 / 28 DAYS (3 WEEKS ON 1 WEEK OFF)
  6. LETROZOLE [Concomitant]
     Active Substance: LETROZOLE
     Dosage: 2.5 MG ONCE A DAY TO CONTINUE
  7. CCM [Concomitant]
     Dosage: UNK, 1X/DAY
  8. CHOLECALCIFEROL [Concomitant]
     Active Substance: CHOLECALCIFEROL
     Dosage: ONCE A WEEK X 12 WEEKS
  9. ESENTRA [DENOSUMAB] [Concomitant]
     Dosage: 120 MG ONCE A MONTH X 3 MONTHS AND THEN ONCE IN 3 MONTH
  10. ESENTRA [DENOSUMAB] [Concomitant]
     Dosage: 120 MG ONCE A MONTH X 2M --} 3M
     Route: 058
  11. DOLO 650 [Concomitant]
     Dosage: 650 MG, 3X/DAY
  12. DOLO 650 [Concomitant]
     Dosage: 650 MG, MORNING EVENING X 1 M

REACTIONS (12)
  - Death [Fatal]
  - Sinus tachycardia [Unknown]
  - Asthenia [Unknown]
  - Pain [Unknown]
  - Pelvic pain [Unknown]
  - Platelet count decreased [Unknown]
  - COVID-19 [Unknown]
  - Blood creatinine increased [Unknown]
  - Spinal osteoarthritis [Unknown]
  - Vertebral wedging [Unknown]
  - White blood cell count decreased [Unknown]
  - Neutrophil percentage abnormal [Unknown]

NARRATIVE: CASE EVENT DATE: 20220101
